FAERS Safety Report 4978302-X (Version None)
Quarter: 2006Q2

REPORT INFORMATION
  Report Type: 
  Country: None (occurrence: None)
  Receive Date: 20060420
  Receipt Date: 20060316
  Transmission Date: 20061013
  Serious: Yes (Death)
  Sender: FDA-Public Use
  Company Number: JP-BRISTOL-MYERS SQUIBB COMPANY-13318431

PATIENT
  Age: 75 Year
  Sex: Male

DRUGS (7)
  1. PARAPLATIN [Suspect]
     Indication: LUNG NEOPLASM MALIGNANT
     Route: 041
     Dates: start: 20050511, end: 20050511
  2. TAXOL [Suspect]
     Indication: LUNG NEOPLASM MALIGNANT
     Route: 041
     Dates: start: 20050511, end: 20050511
  3. MAXIPIME [Suspect]
     Route: 041
     Dates: start: 20050516, end: 20050529
  4. GRAN [Concomitant]
     Route: 058
     Dates: start: 20050516, end: 20050522
  5. OXYCONTIN [Concomitant]
     Route: 048
     Dates: start: 20050518
  6. LASIX [Concomitant]
     Route: 048
     Dates: start: 20050506, end: 20050513
  7. NORVASC [Concomitant]
     Route: 048
     Dates: start: 20050506, end: 20050528

REACTIONS (5)
  - INTERSTITIAL LUNG DISEASE [None]
  - NAUSEA [None]
  - ORAL INTAKE REDUCED [None]
  - RENAL IMPAIRMENT [None]
  - VOMITING [None]
